FAERS Safety Report 9383196 (Version 31)
Quarter: 2019Q4

REPORT INFORMATION
  Report Type: Report from Study
  Country: CA (occurrence: CA)
  Receive Date: 20130704
  Receipt Date: 20191127
  Transmission Date: 20200122
  Serious: Yes (Hospitalization, Other)
  Sender: FDA-Public Use
  Company Number: CA-ROCHE-1074293

PATIENT
  Age: 50 Year
  Sex: Female
  Weight: 53.1 kg

DRUGS (20)
  1. ACTEMRA [Suspect]
     Active Substance: TOCILIZUMAB
     Route: 042
     Dates: start: 20150304
  2. ACTEMRA [Suspect]
     Active Substance: TOCILIZUMAB
     Dosage: DATE OF MOST RECENT DOSE: 26/JUN/2013.
     Route: 042
     Dates: start: 20121108
  3. ACTONEL [Concomitant]
     Active Substance: RISEDRONATE SODIUM
  4. FOLIC ACID. [Concomitant]
     Active Substance: FOLIC ACID
  5. METHOTREXATE. [Concomitant]
     Active Substance: METHOTREXATE
  6. ARAVA [Concomitant]
     Active Substance: LEFLUNOMIDE
  7. ACTEMRA [Suspect]
     Active Substance: TOCILIZUMAB
     Route: 042
     Dates: start: 20130925
  8. PREDNISONE. [Concomitant]
     Active Substance: PREDNISONE
  9. IMURAN [Concomitant]
     Active Substance: AZATHIOPRINE
  10. ACTEMRA [Suspect]
     Active Substance: TOCILIZUMAB
     Route: 042
     Dates: start: 20120718
  11. ACTEMRA [Suspect]
     Active Substance: TOCILIZUMAB
     Route: 042
     Dates: start: 20181205
  12. ACTEMRA [Suspect]
     Active Substance: TOCILIZUMAB
     Route: 042
     Dates: start: 20190904, end: 20190904
  13. ACTEMRA [Suspect]
     Active Substance: TOCILIZUMAB
     Indication: RHEUMATOID ARTHRITIS
     Dosage: DATE OF LAST DOSE: 02/MAY/2012?FIRST RPAP INFUSION
     Route: 042
     Dates: start: 20120208
  14. ACTEMRA [Suspect]
     Active Substance: TOCILIZUMAB
     Route: 042
     Dates: start: 20191112
  15. LOSEC [Concomitant]
     Active Substance: OMEPRAZOLE
  16. VAGIFEM [Concomitant]
     Active Substance: ESTRADIOL
  17. ACTEMRA [Suspect]
     Active Substance: TOCILIZUMAB
     Route: 042
     Dates: start: 20130529
  18. ACTEMRA [Suspect]
     Active Substance: TOCILIZUMAB
     Route: 042
     Dates: start: 20130827
  19. ACTEMRA [Suspect]
     Active Substance: TOCILIZUMAB
     Route: 042
     Dates: start: 200605
  20. ACTEMRA [Suspect]
     Active Substance: TOCILIZUMAB
     Route: 042
     Dates: start: 20191002

REACTIONS (27)
  - Ear infection [Unknown]
  - Vulvovaginal dryness [Not Recovered/Not Resolved]
  - Drug ineffective [Unknown]
  - Infection [Unknown]
  - Pharyngitis [Unknown]
  - Pneumonia [Not Recovered/Not Resolved]
  - Bone disorder [Recovering/Resolving]
  - Rheumatoid arthritis [Unknown]
  - Blood pressure fluctuation [Unknown]
  - Weight decreased [Unknown]
  - Feeling abnormal [Not Recovered/Not Resolved]
  - Malaise [Unknown]
  - Nasopharyngitis [Not Recovered/Not Resolved]
  - Leukopenia [Unknown]
  - Injection site swelling [Unknown]
  - Hypotension [Unknown]
  - Blood pressure diastolic decreased [Unknown]
  - White blood cell count decreased [Unknown]
  - Hypotension [Not Recovered/Not Resolved]
  - Infusion related reaction [Unknown]
  - Weight increased [Recovering/Resolving]
  - Blood pressure systolic decreased [Unknown]
  - Lower respiratory tract infection [Recovering/Resolving]
  - Blood pressure fluctuation [Unknown]
  - Oxygen saturation decreased [Unknown]
  - Off label use [Unknown]
  - Intentional product use issue [Unknown]

NARRATIVE: CASE EVENT DATE: 20120511
